FAERS Safety Report 4878377-2 (Version None)
Quarter: 2005Q4

REPORT INFORMATION
  Report Type: 
  Country: None (occurrence: None)
  Receive Date: 20051209
  Receipt Date: 20051006
  Transmission Date: 20060501
  Serious: No
  Sender: FDA-Public Use
  Company Number: COV2-2005-00322

PATIENT
  Age: 43 Year
  Sex: Male
  Weight: 57.6 kg

DRUGS (13)
  1. FOSRENOL(LANTHANUM CARBONATE 250MG) FOSRENOL(LANTHANUM CARBONATE) TABL [Suspect]
     Indication: HYPERPHOSPHATAEMIA
     Dosage: 1250 MG, 3X/DAY:TID, ORAL
     Route: 048
     Dates: start: 20050411
  2. WYGESIC (DEXTROPROPOXYPHENE HYDROCHLORIDE) [Concomitant]
  3. DIABETA [Concomitant]
  4. SENSIPAR [Concomitant]
  5. TAPAZOLE [Concomitant]
  6. COUMADIN [Concomitant]
  7. RENAX [Concomitant]
  8. CLONIDINE [Concomitant]
  9. CYCLOSPORINE [Concomitant]
  10. ATENOLOL [Concomitant]
  11. INSULIN HUMULIN 70/30 (INSULIN HUMAN, INSULIN HUMAN INJECTION, ISOPHAN [Concomitant]
  12. CARDIZEM [Concomitant]
  13. STOOL SOFTENER (DOCUSATE SODIUM) [Concomitant]

REACTIONS (2)
  - CHILLS [None]
  - PYREXIA [None]
